FAERS Safety Report 16883797 (Version 1)
Quarter: 2019Q4

REPORT INFORMATION
  Report Type: Spontaneous
  Country: DE (occurrence: DE)
  Receive Date: 20191004
  Receipt Date: 20191004
  Transmission Date: 20200122
  Serious: Yes (Other)
  Sender: FDA-Public Use
  Company Number: DE-HETERO-HET2019DE01369

PATIENT
  Sex: Female

DRUGS (9)
  1. LEVETIRACETAM. [Suspect]
     Active Substance: LEVETIRACETAM
     Indication: EPILEPSY
     Dosage: 1500-500-1500 (TOTAL: 3500 MG), 3X/DAY (TID)
     Route: 065
  2. LEVETIRACETAM. [Suspect]
     Active Substance: LEVETIRACETAM
     Dosage: 750 MG, BID DOSE REDUCTION
     Route: 065
  3. LYRICA [Concomitant]
     Active Substance: PREGABALIN
     Indication: NEUROPATHY PERIPHERAL
     Dosage: 750 MG (150-300-300 (TOTAL 750)
     Route: 065
  4. LEVETIRACETAM. [Suspect]
     Active Substance: LEVETIRACETAM
     Dosage: 1000-1000-500-1000, 4X/DAY (QID) IN 1ST TRIMESTER
     Route: 065
  5. LACOSAMIDE. [Suspect]
     Active Substance: LACOSAMIDE
     Indication: EPILEPSY
     Dosage: 100 MG, BID 2X/DAY FIRST TRIMESTER
     Route: 048
  6. LACOSAMIDE. [Suspect]
     Active Substance: LACOSAMIDE
     Dosage: 50 MG, BID
     Route: 048
     Dates: start: 20141216, end: 20141218
  7. LEVETIRACETAM. [Suspect]
     Active Substance: LEVETIRACETAM
     Dosage: DOSE INCREASED
     Route: 065
  8. LEVETIRACETAM. [Suspect]
     Active Substance: LEVETIRACETAM
     Dosage: 3000 MG, 2X/DAY (BID) FIRST TRIMESTER
     Route: 065
  9. LACOSAMIDE. [Suspect]
     Active Substance: LACOSAMIDE
     Dosage: 100 MG, QD FIRST TRIMESTER
     Route: 048

REACTIONS (5)
  - Maternal exposure during pregnancy [Unknown]
  - Off label use [Unknown]
  - Maternal exposure during breast feeding [Unknown]
  - Premature delivery [Unknown]
  - Overdose [Unknown]

NARRATIVE: CASE EVENT DATE: 20141113
